FAERS Safety Report 9350084 (Version 1)
Quarter: 2013Q2

REPORT INFORMATION
  Report Type: Report from Study
  Country: NL (occurrence: NL)
  Receive Date: 20130616
  Receipt Date: 20130616
  Transmission Date: 20140414
  Serious: Yes (Hospitalization, Other)
  Sender: FDA-Public Use
  Company Number: NL-US-EMD SERONO, INC.-7216683

PATIENT
  Age: 52 Year
  Sex: Female
  Weight: 125 kg

DRUGS (8)
  1. REBIF [Suspect]
     Indication: MULTIPLE SCLEROSIS
     Route: 058
     Dates: start: 20120521
  2. BACLOFEN [Concomitant]
     Indication: HYPOTONIA
     Route: 048
     Dates: start: 2011
  3. HYDROXOCOBALAMIN [Concomitant]
     Indication: VITAMIN B12 DEFICIENCY
     Dosage: 500MCG/ML PER AMP. 2 ML
     Route: 058
     Dates: start: 2008
  4. OMEPRAZOL                          /00661201/ [Concomitant]
     Indication: PROPHYLAXIS AGAINST GASTROINTESTINAL ULCER
     Route: 048
     Dates: start: 2011
  5. PARACETAMOL W/TRAMADOL [Concomitant]
     Indication: PAIN
     Dosage: 325 MG/ 37.5
     Route: 048
  6. PARACETAMOL [Concomitant]
     Indication: PRODUCT USED FOR UNKNOWN INDICATION
     Dates: start: 20120620
  7. PARACETAMOL [Concomitant]
  8. METOPROLOL [Concomitant]
     Indication: HYPERTENSION
     Route: 048

REACTIONS (3)
  - Multiple sclerosis relapse [Unknown]
  - Nephrolithiasis [Unknown]
  - Erysipelas [Unknown]
